FAERS Safety Report 18818209 (Version 5)
Quarter: 2021Q2

REPORT INFORMATION
  Report Type: Report from Study
  Country: US (occurrence: US)
  Receive Date: 20210201
  Receipt Date: 20210621
  Transmission Date: 20210717
  Serious: Yes (Hospitalization, Disabling)
  Sender: FDA-Public Use
  Company Number: NVSC2021US018866

PATIENT
  Sex: Female

DRUGS (1)
  1. ENTRESTO [Suspect]
     Active Substance: SACUBITRIL\VALSARTAN
     Indication: PRODUCT USED FOR UNKNOWN INDICATION
     Dosage: 1 DF (24/26 MG), BID
     Route: 048
     Dates: start: 2020

REACTIONS (9)
  - Alopecia [Unknown]
  - Dyspnoea [Unknown]
  - Weight abnormal [Unknown]
  - Back injury [Recovering/Resolving]
  - Cardiac failure [Unknown]
  - Product dose omission issue [Unknown]
  - Blood glucose abnormal [Unknown]
  - Fatigue [Unknown]
  - Malnutrition [Unknown]

NARRATIVE: CASE EVENT DATE: 2020
